FAERS Safety Report 10040314 (Version 1)
Quarter: 2014Q1

REPORT INFORMATION
  Report Type: Spontaneous
  Country: IT (occurrence: IT)
  Receive Date: 20140327
  Receipt Date: 20140327
  Transmission Date: 20141002
  Serious: Yes (Other)
  Sender: FDA-Public Use
  Company Number: IT-B.I. PHARMACEUTICALS,INC./RIDGEFIELD-2014-BI-12412IT

PATIENT
  Age: 83 Year
  Sex: Female

DRUGS (6)
  1. MICARDIS [Suspect]
     Indication: HYPERTENSION
     Route: 048
     Dates: start: 20140101, end: 20140103
  2. LEVOTHYROXINE SODIUM [Concomitant]
     Route: 065
  3. ENAPREN [Concomitant]
     Route: 065
  4. FUROSEMIDE DOC GENERICI [Concomitant]
     Route: 065
  5. DOXAZOSIN DOC GENERICI [Concomitant]
     Route: 065
  6. ENTACT [Concomitant]
     Route: 065

REACTIONS (3)
  - Hypertensive crisis [Not Recovered/Not Resolved]
  - Headache [Not Recovered/Not Resolved]
  - Drug ineffective [Not Recovered/Not Resolved]
